FAERS Safety Report 8884891 (Version 1)
Quarter: 2012Q4

REPORT INFORMATION
  Report Type: 
  Country: MX (occurrence: US)
  Receive Date: 20121102
  Receipt Date: 20121102
  Transmission Date: 20130627
  Serious: Yes (Disabling, Other)
  Sender: FDA-Public Use
  Company Number: US-009507513-0705USA01553

PATIENT

DRUGS (2)
  1. FOSAMAX [Suspect]
     Indication: ANKLE FRACTURE
     Dosage: 10 mg, UNK
     Route: 048
  2. LOPID [Concomitant]
     Indication: BLOOD CHOLESTEROL INCREASED
     Dates: start: 1972

REACTIONS (38)
  - Oral infection [Unknown]
  - Gingival disorder [Unknown]
  - Gingival bleeding [Unknown]
  - Abscess [Unknown]
  - Oral disorder [Unknown]
  - Pain in jaw [Unknown]
  - Tooth loss [Unknown]
  - Swelling [Unknown]
  - Tooth infection [Unknown]
  - Cerebrovascular accident [Unknown]
  - Transient ischaemic attack [Unknown]
  - Bruxism [Unknown]
  - Loose tooth [Unknown]
  - Malocclusion [Unknown]
  - Periodontitis [Unknown]
  - Dental plaque [Unknown]
  - Bone erosion [Unknown]
  - Tooth infection [Unknown]
  - Hepatic neoplasm [Unknown]
  - Hypothyroidism [Unknown]
  - Anxiety disorder [Unknown]
  - Gastrooesophageal reflux disease [Unknown]
  - Hepatic steatosis [Unknown]
  - Glucose tolerance impaired [Unknown]
  - Hypoglycaemia [Unknown]
  - Hypertension [Unknown]
  - Fibrocystic breast disease [Unknown]
  - Breast pain [Unknown]
  - Pain in extremity [Unknown]
  - Osteonecrosis of jaw [Unknown]
  - Jaw operation [Unknown]
  - Back pain [Unknown]
  - Arthritis [Unknown]
  - Osteoarthritis [Unknown]
  - Tenosynovitis [Unknown]
  - Temporomandibular joint syndrome [Unknown]
  - Diarrhoea [Unknown]
  - Abdominal mass [Unknown]
